FAERS Safety Report 25228341 (Version 1)
Quarter: 2025Q2

REPORT INFORMATION
  Report Type: Spontaneous
  Country: US (occurrence: US)
  Receive Date: 20250423
  Receipt Date: 20250423
  Transmission Date: 20250717
  Serious: Yes (Other)
  Sender: BAUSCH AND LOMB
  Company Number: US-BAUSCHBL-2025BNL007018

PATIENT
  Sex: Female

DRUGS (1)
  1. WALGREENS STERILE SOOTHING EYE WASH [Suspect]
     Active Substance: WATER
     Indication: Product used for unknown indication
     Route: 047

REACTIONS (8)
  - Exophthalmos [Unknown]
  - Blood pressure increased [Unknown]
  - Eye pruritus [Unknown]
  - Eyelid margin crusting [Unknown]
  - Eye swelling [Unknown]
  - Eye discharge [Unknown]
  - Eye irritation [Unknown]
  - Ocular hyperaemia [Unknown]
